FAERS Safety Report 7490970-X (Version None)
Quarter: 2011Q2

REPORT INFORMATION
  Report Type: 
  Country: None (occurrence: None)
  Receive Date: 20110517
  Receipt Date: 20110517
  Transmission Date: 20111010
  Serious: Yes (Hospitalization)
  Sender: FDA-Public Use
  Company Number: None

PATIENT
  Sex: Female
  Weight: 56.6996 kg

DRUGS (1)
  1. CORGARD [Suspect]
     Indication: MITRAL VALVE PROLAPSE
     Dosage: 80 MG ONCE DAILY PO
     Route: 048

REACTIONS (9)
  - PALPITATIONS [None]
  - TACHYCARDIA [None]
  - SOMNOLENCE [None]
  - HYPOTENSION [None]
  - FATIGUE [None]
  - BRADYCARDIA [None]
  - DYSPNOEA [None]
  - HEART RATE IRREGULAR [None]
  - DRUG WITHDRAWAL SYNDROME [None]
